FAERS Safety Report 10357708 (Version 1)
Quarter: 2014Q3

REPORT INFORMATION
  Report Type: Spontaneous
  Country: GB (occurrence: GB)
  Receive Date: 20140801
  Receipt Date: 20140801
  Transmission Date: 20150326
  Serious: Yes (Hospitalization)
  Sender: FDA-Public Use
  Company Number: GB-TEVA-496988ISR

PATIENT
  Sex: Female

DRUGS (13)
  1. QUININE [Concomitant]
     Active Substance: QUININE
  2. GABAPENTIN. [Suspect]
     Active Substance: GABAPENTIN
     Dosage: 600 MILLIGRAM DAILY; DOSE INCREASED TO 300MG THREE TIMES A DAY PRIOR TO ADMISSION
     Route: 048
  3. LERCANIDIPINE [Concomitant]
     Active Substance: LERCANIDIPINE
  4. MORPHINE [Suspect]
     Active Substance: MORPHINE
     Dosage: 40 MILLIGRAM DAILY;
     Route: 048
  5. GABAPENTIN. [Suspect]
     Active Substance: GABAPENTIN
     Indication: NEURALGIA
     Dosage: 900 MILLIGRAM DAILY;
     Route: 048
  6. DOCUSATE [Concomitant]
     Active Substance: DOCUSATE
  7. PARACETAMOL [Concomitant]
     Active Substance: ACETAMINOPHEN
  8. CYCLIZINE [Concomitant]
     Active Substance: CYCLIZINE
  9. OMEPRAZOLE. [Concomitant]
     Active Substance: OMEPRAZOLE
  10. MEGESTROL ACETATE. [Concomitant]
     Active Substance: MEGESTROL ACETATE
  11. MORPHINE [Suspect]
     Active Substance: MORPHINE
     Indication: ANALGESIC THERAPY
     Dosage: 20 MILLIGRAM DAILY; DOSE INCREASED TO 20MG TWICE DAILY BEFORE ADMISSION
     Route: 048
  12. MACROGOL 3350 [Concomitant]
  13. SENNA [Concomitant]
     Active Substance: SENNA LEAF\SENNOSIDES\SENNOSIDES A AND B

REACTIONS (3)
  - Confusional state [Recovering/Resolving]
  - Fall [Unknown]
  - Somnolence [Recovering/Resolving]

NARRATIVE: CASE EVENT DATE: 20140706
